FAERS Safety Report 25615542 (Version 1)
Quarter: 2025Q3

REPORT INFORMATION
  Report Type: Spontaneous
  Country: MY (occurrence: MY)
  Receive Date: 20250729
  Receipt Date: 20250729
  Transmission Date: 20251020
  Serious: Yes (Other)
  Sender: ROCHE
  Company Number: MY-002147023-NVSC2025MY117659

PATIENT
  Age: 47 Year
  Sex: Female

DRUGS (1)
  1. XOLAIR [Suspect]
     Active Substance: OMALIZUMAB
     Indication: Asthma
     Dosage: 225 MG, QD?POWDER AND SOLVENT FOR SOLUTION FOR INJECTION
     Route: 058

REACTIONS (2)
  - Rhonchi [Recovered/Resolved]
  - Dyspnoea [Recovered/Resolved]
